FAERS Safety Report 7512514-6 (Version None)
Quarter: 2011Q2

REPORT INFORMATION
  Report Type: 
  Country: None (occurrence: None)
  Receive Date: 20110531
  Receipt Date: 20110523
  Transmission Date: 20111010
  Serious: Yes (Hospitalization)
  Sender: FDA-Public Use
  Company Number: DE-TEVA-283394GER

PATIENT
  Sex: Female

DRUGS (2)
  1. CLARITHROMYCIN [Suspect]
     Indication: INFECTION
  2. MARCUMAR [Concomitant]
     Indication: COAGULOPATHY

REACTIONS (3)
  - CEREBROVASCULAR ACCIDENT [None]
  - PETECHIAE [None]
  - PROTHROMBIN TIME PROLONGED [None]
